FAERS Safety Report 14449517 (Version 1)
Quarter: 2018Q1

REPORT INFORMATION
  Report Type: Spontaneous
  Country: US (occurrence: US)
  Receive Date: 20180126
  Receipt Date: 20180126
  Transmission Date: 20180509
  Serious: Yes (Other)
  Sender: FDA-Public Use
  Company Number: None

PATIENT
  Age: 56 Year
  Sex: Male
  Weight: 97.52 kg

DRUGS (1)
  1. LESINURAD 200 MG [Suspect]
     Active Substance: LESINURAD
     Indication: GOUT
     Dosage: DOSE - 1 TAB (200MG)
     Route: 048
     Dates: start: 20171102, end: 20171116

REACTIONS (1)
  - Blood creatinine increased [None]

NARRATIVE: CASE EVENT DATE: 20171115
